FAERS Safety Report 5942992-5 (Version None)
Quarter: 2008Q4

REPORT INFORMATION
  Report Type: 
  Country: None (occurrence: None)
  Receive Date: 20081106
  Receipt Date: 20081006
  Transmission Date: 20090506
  Serious: No
  Sender: FDA-Public Use
  Company Number: US-BAYER-200835557NA

PATIENT
  Age: 28 Year
  Sex: Female
  Weight: 60 kg

DRUGS (1)
  1. MIRENA [Suspect]
     Indication: CONTRACEPTION
     Route: 015
     Dates: start: 20080301

REACTIONS (5)
  - ABDOMINAL PAIN LOWER [None]
  - HEADACHE [None]
  - MENSTRUATION IRREGULAR [None]
  - MOOD SWINGS [None]
  - WEIGHT INCREASED [None]
